FAERS Safety Report 5707448-3 (Version None)
Quarter: 2008Q2

REPORT INFORMATION
  Report Type: 
  Country: None (occurrence: None)
  Receive Date: 20080416
  Receipt Date: 20080403
  Transmission Date: 20081010
  Serious: Yes (Death, Hospitalization)
  Sender: FDA-Public Use
  Company Number: FR-WYE-H03624908

PATIENT
  Sex: Female

DRUGS (11)
  1. CORDARONE [Suspect]
     Dosage: 200 MG, FREQUENCY UNKNOWN
     Route: 048
  2. KARDEGIC [Concomitant]
     Dosage: DOSE UNKNOWN
     Route: 065
  3. NEXIUM [Concomitant]
     Dosage: DOSE UNKNOWN
     Route: 065
  4. SPECIAFOLDINE [Concomitant]
     Dosage: DOSE UNKNOWN
     Route: 048
  5. ATORVASTATIN CALCIUM [Concomitant]
     Dosage: DOSE UNKNOWN
     Route: 048
  6. TARDYFERON-FOL [Concomitant]
     Dosage: DOSE UNKNOWN
     Route: 048
  7. NEBIVOLOL HCL [Interacting]
     Route: 048
     Dates: start: 20071003, end: 20071003
  8. NEBIVOLOL HCL [Interacting]
     Route: 048
     Dates: start: 20071004, end: 20071004
  9. NEBIVOLOL HCL [Interacting]
     Route: 048
     Dates: start: 20071005, end: 20071005
  10. NEBIVOLOL HCL [Interacting]
     Route: 048
     Dates: start: 20071006, end: 20071008
  11. LASILIX [Concomitant]
     Dosage: DOSE UNKNOWN
     Route: 065

REACTIONS (7)
  - ATRIOVENTRICULAR BLOCK COMPLETE [None]
  - CARDIOGENIC SHOCK [None]
  - COMA [None]
  - DRUG INTERACTION [None]
  - HEPATIC FAILURE [None]
  - RENAL FAILURE ACUTE [None]
  - SEPTIC SHOCK [None]
